FAERS Safety Report 6955574-3 (Version None)
Quarter: 2010Q3

REPORT INFORMATION
  Report Type: 
  Country: None (occurrence: None)
  Receive Date: 20100830
  Receipt Date: 20100823
  Transmission Date: 20110219
  Serious: Yes (Hospitalization)
  Sender: FDA-Public Use
  Company Number: FR-SANOFI-AVENTIS-2010SA049850

PATIENT
  Age: 87 Year
  Sex: Male

DRUGS (8)
  1. ALFUZOSIN HCL [Suspect]
     Indication: DYSURIA
     Route: 048
     Dates: end: 20100601
  2. IBUPROFEN [Suspect]
     Route: 048
     Dates: start: 20100529, end: 20100531
  3. EXELON [Suspect]
     Route: 048
  4. FLOXYFRAL [Suspect]
     Indication: DEMENTIA
     Route: 048
     Dates: end: 20100601
  5. MIANSERINE [Suspect]
     Indication: DEMENTIA
     Route: 048
  6. ATACAND [Suspect]
     Route: 048
     Dates: end: 20100601
  7. BETASERC [Suspect]
     Route: 048
     Dates: end: 20100601
  8. ALLOPURINOL [Suspect]
     Route: 048

REACTIONS (2)
  - HEPATITIS ACUTE [None]
  - RENAL FAILURE ACUTE [None]
